FAERS Safety Report 24213584 (Version 1)
Quarter: 2024Q3

REPORT INFORMATION
  Report Type: Spontaneous
  Country: PT (occurrence: PT)
  Receive Date: 20240815
  Receipt Date: 20240815
  Transmission Date: 20241017
  Serious: Yes (Hospitalization)
  Sender: ORGANON
  Company Number: PT-CHEPLA-2024010292

PATIENT
  Age: 92 Year
  Sex: Male

DRUGS (6)
  1. LOSARTAN POTASSIUM AND HYDROCHLOROTHIAZIDE [Suspect]
     Active Substance: HYDROCHLOROTHIAZIDE\LOSARTAN POTASSIUM
     Dosage: LOSARTAN+HIDROCLOROTIAZIA 50/12 MG (1 PILL PER DAY)
  2. TERBINAFINE [Suspect]
     Active Substance: TERBINAFINE
     Dosage: TERBINAFINE 250 MG (1 PILL PER DAY).
  3. CHOLESTYRAMINE [Suspect]
     Active Substance: CHOLESTYRAMINE
     Indication: Cholestasis
     Dosage: UNK
  4. BETAHISTINE [Suspect]
     Active Substance: BETAHISTINE
     Dosage: 16 MG OF BETA-HISTINA (1 PILL 2 TIMES PER DAY)
  5. PHYTONADIONE [Concomitant]
     Active Substance: PHYTONADIONE
     Indication: Malabsorption
     Dosage: PARENTERAL
  6. URSODIOL [Concomitant]
     Active Substance: URSODIOL
     Indication: Cholestasis
     Dosage: UNK

REACTIONS (2)
  - Hepatitis toxic [Recovering/Resolving]
  - Off label use [Unknown]
